FAERS Safety Report 22053799 (Version 2)
Quarter: 2023Q1

REPORT INFORMATION
  Report Type: Report from Study
  Country: IT (occurrence: None)
  Receive Date: 20230302
  Receipt Date: 20230314
  Transmission Date: 20230418
  Serious: Yes (Life-Threatening, Hospitalization)
  Sender: FDA-Public Use
  Company Number: IT-Merck Healthcare KGaA-9385473

PATIENT
  Age: 42 Year
  Sex: Female

DRUGS (2)
  1. CLADRIBINE [Suspect]
     Active Substance: CLADRIBINE
     Indication: Relapsing multiple sclerosis
     Dosage: YEAR ONE WEEK ONE THERAPY: PERMANENTLY DISCONTINUED ON 13 OCT 2022
     Dates: start: 20220330, end: 20220403
  2. CHOLECALCIFEROL [Concomitant]
     Active Substance: CHOLECALCIFEROL
     Indication: Vitamin D deficiency
     Dosage: 25.000 U
     Route: 048
     Dates: start: 20220225

REACTIONS (1)
  - Drug-induced liver injury [Recovered/Resolved]

NARRATIVE: CASE EVENT DATE: 20220516
